FAERS Safety Report 4681314-7 (Version None)
Quarter: 2005Q2

REPORT INFORMATION
  Report Type: 
  Country: None (occurrence: None)
  Receive Date: 20050601
  Receipt Date: 20050620
  Transmission Date: 20051028
  Serious: Yes (Hospitalization)
  Sender: FDA-Public Use
  Company Number: US-2005-008485

PATIENT
  Age: 45 Year
  Sex: Male

DRUGS (2)
  1. BETASERON [Suspect]
     Indication: MULTIPLE SCLEROSIS
     Dosage: SUBCUTANEOUS
     Route: 058
     Dates: start: 20020101, end: 20050101
  2. CORTICOSTEROIDS [Suspect]
     Indication: MULTIPLE SCLEROSIS
     Dosage: TAPERING DOSE; ORAL
     Route: 048
     Dates: start: 20050101, end: 20050101

REACTIONS (5)
  - BLOOD TRIGLYCERIDES INCREASED [None]
  - CONDITION AGGRAVATED [None]
  - KETOACIDOSIS [None]
  - METABOLIC DISORDER [None]
  - MULTIPLE SCLEROSIS [None]
